FAERS Safety Report 19884348 (Version 1)
Quarter: 2021Q3

REPORT INFORMATION
  Report Type: Spontaneous
  Country: US (occurrence: US)
  Receive Date: 20210926
  Receipt Date: 20210926
  Transmission Date: 20211014
  Serious: Yes (Other)
  Sender: FDA-Public Use
  Company Number: None

PATIENT
  Age: 62 Year
  Sex: Female
  Weight: 87.75 kg

DRUGS (1)
  1. HUMIRA [Suspect]
     Active Substance: ADALIMUMAB
     Indication: RHEUMATOID ARTHRITIS
     Dates: start: 20210621, end: 20210705

REACTIONS (4)
  - Eye swelling [None]
  - Peripheral swelling [None]
  - Tinnitus [None]
  - Lip swelling [None]

NARRATIVE: CASE EVENT DATE: 20210715
